FAERS Safety Report 25368196 (Version 1)
Quarter: 2025Q2

REPORT INFORMATION
  Report Type: Report from Study
  Country: US (occurrence: US)
  Receive Date: 20250528
  Receipt Date: 20250528
  Transmission Date: 20250717
  Serious: Yes (Other)
  Sender: AUROBINDO
  Company Number: US-AUROBINDO-AUR-APL-2025-027868

PATIENT

DRUGS (2)
  1. CELECOXIB [Suspect]
     Active Substance: CELECOXIB
     Indication: Squamous cell carcinoma of head and neck
     Dosage: 400 MILLIGRAM, TWO TIMES A DAY
     Route: 065
  2. ERLOTINIB [Suspect]
     Active Substance: ERLOTINIB
     Indication: Squamous cell carcinoma of head and neck
     Route: 065

REACTIONS (1)
  - Squamous cell carcinoma [Unknown]
